FAERS Safety Report 17184424 (Version 1)
Quarter: 2019Q4

REPORT INFORMATION
  Report Type: Spontaneous
  Country: US (occurrence: US)
  Receive Date: 20191219
  Receipt Date: 20191219
  Transmission Date: 20200122
  Serious: No
  Sender: FDA-Public Use
  Company Number: None

PATIENT
  Sex: Female

DRUGS (1)
  1. AUSTEDO [Suspect]
     Active Substance: DEUTETRABENAZINE
     Indication: DYSKINESIA
     Route: 048
     Dates: start: 20181004

REACTIONS (14)
  - Cognitive disorder [None]
  - Abnormal dreams [None]
  - Confusional state [None]
  - Headache [None]
  - Fall [None]
  - Weight fluctuation [None]
  - Delusion [None]
  - Dizziness [None]
  - Tremor [None]
  - Chills [None]
  - Hallucination [None]
  - Dyskinesia [None]
  - Depressed mood [None]
  - Neck pain [None]
